FAERS Safety Report 12094592 (Version 2)
Quarter: 2016Q2

REPORT INFORMATION
  Report Type: Spontaneous
  Country: BE (occurrence: BE)
  Receive Date: 20160219
  Receipt Date: 20160401
  Transmission Date: 20160815
  Serious: Yes (Death, Hospitalization, Congenital Anomaly, Other)
  Sender: FDA-Public Use
  Company Number: BE-JNJFOC-20160215568

PATIENT
  Sex: Male

DRUGS (1)
  1. XEPLION [Suspect]
     Active Substance: PALIPERIDONE PALMITATE
     Indication: SCHIZOPHRENIA
     Route: 064

REACTIONS (2)
  - Trisomy 21 [Fatal]
  - Foetal exposure during pregnancy [Recovered/Resolved]
